FAERS Safety Report 15719517 (Version 1)
Quarter: 2018Q4

REPORT INFORMATION
  Report Type: Spontaneous
  Country: PL (occurrence: PL)
  Receive Date: 20181213
  Receipt Date: 20181213
  Transmission Date: 20190205
  Serious: Yes (Other)
  Sender: FDA-Public Use
  Company Number: PL-PROVELL PHARMACEUTICALS-2060155

PATIENT
  Sex: Female

DRUGS (3)
  1. FOLIC ACID. [Concomitant]
     Active Substance: FOLIC ACID
  2. EUTHYROX [Suspect]
     Active Substance: LEVOTHYROXINE SODIUM
     Indication: PRODUCT USED FOR UNKNOWN INDICATION
  3. DOSTINEX [Concomitant]
     Active Substance: CABERGOLINE

REACTIONS (4)
  - Cervical incompetence [None]
  - Abortion spontaneous [Recovered/Resolved]
  - Multiple pregnancy [None]
  - Maternal exposure during pregnancy [Recovered/Resolved]
